FAERS Safety Report 21193918 (Version 1)
Quarter: 2022Q3

REPORT INFORMATION
  Report Type: Report from Study
  Country: US (occurrence: None)
  Receive Date: 20220810
  Receipt Date: 20220810
  Transmission Date: 20221027
  Serious: Yes (Hospitalization)
  Sender: FDA-Public Use
  Company Number: US-ROCHE-3154584

PATIENT
  Age: 40 Year
  Sex: Male
  Weight: 123.2 kg

DRUGS (3)
  1. OBINUTUZUMAB [Suspect]
     Active Substance: OBINUTUZUMAB
     Indication: Chronic lymphocytic leukaemia
     Dosage: OVER 4 HOURS ON DAYS 1, 2, 8, AND 15 OF CYCLE 1 AND ON DAY 1 OF CYCLES 2-6 ?900 MG IV ON DAY 2, CYCL
     Route: 042
     Dates: start: 20210114
  2. VENETOCLAX [Suspect]
     Active Substance: VENETOCLAX
     Indication: Chronic lymphocytic leukaemia
     Dosage: 50 MG PO QD DAYS 8-14, CYCLE 3, 100 MG PO QD DAYS 15-21, CYCLE 3, 200 MG PO QD DAYS 22-28, CYCLE 3,
     Route: 048
     Dates: start: 20210114
  3. IBRUTINIB [Suspect]
     Active Substance: IBRUTINIB
     Indication: Chronic lymphocytic leukaemia
     Dosage: ON 07/JUL/2022, LAST DOSE OF IBRUTINIB 31080 MG ADMINISTERED.
     Route: 048
     Dates: start: 20210114

REACTIONS (1)
  - COVID-19 [Recovered/Resolved]

NARRATIVE: CASE EVENT DATE: 20220708
